FAERS Safety Report 5191759-7 (Version None)
Quarter: 2006Q4

REPORT INFORMATION
  Report Type: 
  Country: None (occurrence: None)
  Receive Date: 20061219
  Receipt Date: 20061204
  Transmission Date: 20070319
  Serious: Yes (Other)
  Sender: FDA-Public Use
  Company Number: DE-2006-034881

PATIENT
  Age: 56 Year
  Sex: Female
  Weight: 60 kg

DRUGS (18)
  1. MAGNEVIST [Suspect]
     Indication: NUCLEAR MAGNETIC RESONANCE IMAGING
     Dosage: 20 ML, 1 DOSE,
     Dates: start: 20061024, end: 20061024
  2. NEXIUM MUPS (ESOMEPRAZOLE) TABLET [Concomitant]
  3. HERZASS ^RATIOPHARM^ (ACETYLSALICYLIC ACID) TABLET [Concomitant]
  4. SODIUM BICARBONATE IN PLASTIC CONTAINER [Concomitant]
  5. ISOKET RETARD TABLET [Concomitant]
  6. CALCIUM ACETATE (CALCIUM ACETATE) FILM TABLET [Concomitant]
  7. TOREM /GFR/ (TORASEMIDE) TABLET [Concomitant]
  8. ENALAPRIL MALEATE [Concomitant]
  9. NITREPRESS TABLET [Concomitant]
  10. CYNT (MOXONIDIPINE) FILM TABLET [Concomitant]
  11. CARVEDILOL (CARVEDILOL) TABLET [Concomitant]
  12. THYRONAJOD (POTASSIUM IODIDE, LEVOTHYROXINE SODIUM) TABLET [Concomitant]
  13. SIMVASTATIN (SIMVASTATIN) FILM TABLET [Concomitant]
  14. MIMPARA FILM TABLET [Concomitant]
  15. BONDIOL (ALFACALCIDOL) CAPSULE [Concomitant]
  16. FERRLECIT /GFR/ (FERRIC SODIUM GLUCONATE COMPLEX) AMPULE [Concomitant]
  17. DEKRISTOL CAPSULE [Concomitant]
  18. ARANESP PREFILLED SYRINGE [Concomitant]

REACTIONS (3)
  - ANOREXIA [None]
  - SEPSIS [None]
  - VOMITING [None]
